FAERS Safety Report 7332261-3 (Version None)
Quarter: 2011Q1

REPORT INFORMATION
  Report Type: 
  Country: None (occurrence: None)
  Receive Date: 20110304
  Receipt Date: 20110225
  Transmission Date: 20110831
  Serious: Yes (Other)
  Sender: FDA-Public Use
  Company Number: KR-ROCHE-734409

PATIENT
  Sex: Female
  Weight: 54 kg

DRUGS (8)
  1. METHOTREXATE [Suspect]
     Indication: RHEUMATOID ARTHRITIS
     Route: 048
     Dates: start: 20070814
  2. TOCILIZUMAB [Suspect]
     Dosage: FOLLOWING END-OF STUDY UNBLINDING OF STUDY TCZ301,THE PATIENT WAS RANDOMIZED TO TOCILIZUMAB
     Route: 042
     Dates: start: 20091027, end: 20100316
  3. FOLIC ACID [Concomitant]
     Route: 048
     Dates: start: 20050313
  4. TOCILIZUMAB [Suspect]
     Indication: RHEUMATOID ARTHRITIS
     Route: 042
     Dates: start: 20100415, end: 20100930
  5. TRIAMCINOLONE [Concomitant]
     Route: 048
     Dates: start: 20100706
  6. DILTIAZEM [Concomitant]
     Route: 048
     Dates: start: 20080219
  7. REBAMIPIDE [Concomitant]
     Route: 048
     Dates: start: 20100706
  8. HYDROXYCHLOROQUINE [Concomitant]
     Route: 048
     Dates: start: 20090609

REACTIONS (1)
  - ABORTION SPONTANEOUS [None]
